FAERS Safety Report 4914199-1 (Version None)
Quarter: 2006Q1

REPORT INFORMATION
  Report Type: 
  Country: None (occurrence: None)
  Receive Date: 20060113
  Receipt Date: 20051104
  Transmission Date: 20060701
  Serious: No
  Sender: FDA-Public Use
  Company Number: 2005SP003850

PATIENT
  Age: 31 Year
  Sex: Female

DRUGS (2)
  1. LUNESTA [Suspect]
     Dosage: 2 MG; HS; ORAL;  1 MG; HS; ORAL
     Route: 048
     Dates: start: 20050101, end: 20050101
  2. LUNESTA [Suspect]
     Dosage: 2 MG; HS; ORAL;  1 MG; HS; ORAL
     Route: 048
     Dates: start: 20050101, end: 20050101

REACTIONS (1)
  - SOMNOLENCE [None]
